FAERS Safety Report 5278508-9 (Version None)
Quarter: 2007Q1

REPORT INFORMATION
  Report Type: 
  Country: None (occurrence: None)
  Receive Date: 20070328
  Receipt Date: 20070320
  Transmission Date: 20070707
  Serious: Yes (Death, Hospitalization, Other)
  Sender: FDA-Public Use
  Company Number: US-BAYER-200616492BWH

PATIENT
  Age: 37 Year
  Sex: Male

DRUGS (3)
  1. NEXAVAR [Suspect]
     Indication: MALIGNANT MELANOMA
     Route: 048
  2. NEXAVAR [Suspect]
     Route: 048
     Dates: end: 20061128
  3. CHEMOTHERAPY AGENT (NOS) [Concomitant]

REACTIONS (13)
  - BRAIN NEOPLASM [None]
  - DEATH [None]
  - EYELID PTOSIS [None]
  - FACIAL PALSY [None]
  - HYPOAESTHESIA [None]
  - INFECTION [None]
  - MONOPLEGIA [None]
  - MUSCLE SPASMS [None]
  - MUSCULAR WEAKNESS [None]
  - NEOPLASM [None]
  - PARALYSIS [None]
  - PLATELET COUNT DECREASED [None]
  - PYREXIA [None]
